FAERS Safety Report 18010180 (Version 3)
Quarter: 2020Q3

REPORT INFORMATION
  Report Type: Spontaneous
  Country: DE (occurrence: DE)
  Receive Date: 20200710
  Receipt Date: 20200831
  Transmission Date: 20201103
  Serious: Yes (Other)
  Sender: FDA-Public Use
  Company Number: DE-PFIZER INC-2020262382

PATIENT
  Age: 62 Year
  Sex: Male

DRUGS (1)
  1. INSPRA [Suspect]
     Active Substance: EPLERENONE
     Dosage: 25 MG
     Dates: start: 2020

REACTIONS (5)
  - Cardiac failure [Unknown]
  - Dyspnoea [Recovering/Resolving]
  - Arrhythmia [Unknown]
  - Feeling abnormal [Unknown]
  - Agitation [Recovering/Resolving]

NARRATIVE: CASE EVENT DATE: 202007
